FAERS Safety Report 9472867 (Version 3)
Quarter: 2013Q3

REPORT INFORMATION
  Report Type: Spontaneous
  Country: US (occurrence: US)
  Receive Date: 20130823
  Receipt Date: 20130917
  Transmission Date: 20140515
  Serious: No
  Sender: FDA-Public Use
  Company Number: US-PFIZER INC-2013240264

PATIENT
  Age: 58 Year
  Sex: Female
  Weight: 63.49 kg

DRUGS (2)
  1. AVINZA [Suspect]
     Indication: BACK PAIN
     Dosage: 90 MG, 1X/DAY (DAILY)
     Route: 048
  2. LISINOPRIL [Concomitant]
     Indication: HYPERTENSION
     Dosage: 5 MG, DAILY

REACTIONS (3)
  - Poor quality drug administered [Unknown]
  - Drug ineffective [Unknown]
  - Product physical issue [Unknown]
